FAERS Safety Report 10244241 (Version 1)
Quarter: 2014Q2

REPORT INFORMATION
  Report Type: Spontaneous
  Country: CH (occurrence: CH)
  Receive Date: 20140618
  Receipt Date: 20140618
  Transmission Date: 20141212
  Serious: Yes (Hospitalization)
  Sender: FDA-Public Use
  Company Number: CH-PFIZER INC-2014166092

PATIENT
  Age: 55 Year
  Sex: Male

DRUGS (11)
  1. PANTOZOL [Suspect]
     Indication: RENAL TRANSPLANT
     Dosage: 40 MG, DAILY
     Route: 048
     Dates: start: 201401
  2. PROGRAF [Suspect]
     Indication: RENAL TRANSPLANT
     Dosage: 2.5 MG, DAILY
     Route: 048
     Dates: start: 201401
  3. CELLCEPT [Suspect]
     Indication: RENAL TRANSPLANT
     Dosage: 2 DF, 1X/DAY
     Route: 048
     Dates: start: 201401, end: 201402
  4. VALCYTE [Suspect]
     Indication: RENAL TRANSPLANT
     Dosage: 500 MMOL, 1X/DAY
     Route: 048
     Dates: start: 201401
  5. AMPHO-MORONAL [Suspect]
     Indication: RENAL TRANSPLANT
     Dosage: 500 MMOL, 1X/DAY
     Route: 048
     Dates: start: 201401, end: 201402
  6. NOPIL [Suspect]
     Indication: RENAL TRANSPLANT
     Dosage: 1 DF, 1X/DAY
     Route: 048
     Dates: start: 201401, end: 201402
  7. NOPIL [Suspect]
     Dosage: 1 DF, 1X/DAY
     Route: 048
  8. PREDNISON [Concomitant]
     Dosage: UNK
  9. TENORMIN [Concomitant]
     Dosage: UNK
  10. CALCIMAGON-D3 [Concomitant]
     Dosage: UNK
  11. SORTIS [Concomitant]
     Dosage: UNK

REACTIONS (2)
  - Hyperkalaemia [Recovered/Resolved]
  - Diarrhoea [Recovered/Resolved]
